FAERS Safety Report 5027994-8 (Version None)
Quarter: 2006Q2

REPORT INFORMATION
  Report Type: 
  Country: None (occurrence: None)
  Receive Date: 20060616
  Receipt Date: 20060515
  Transmission Date: 20061013
  Serious: Yes (Hospitalization, Other)
  Sender: FDA-Public Use
  Company Number: 2006UW09657

PATIENT
  Age: 30255 Day
  Sex: Male
  Weight: 75 kg

DRUGS (7)
  1. CRESTOR [Suspect]
     Indication: BLOOD CHOLESTEROL INCREASED
     Route: 048
     Dates: start: 20060427, end: 20060505
  2. RAMIPRIL [Concomitant]
     Route: 048
  3. METOPROLOL TARTRATE [Concomitant]
     Route: 048
  4. B12 [Concomitant]
     Route: 030
  5. LEVOTHYROXINE SODIUM [Concomitant]
     Route: 048
  6. ASPIRIN [Concomitant]
     Route: 048
  7. POLYCOSANOL [Concomitant]
     Dates: end: 20060420

REACTIONS (2)
  - FALL [None]
  - MYASTHENIA GRAVIS [None]
